FAERS Safety Report 16502128 (Version 1)
Quarter: 2019Q3

REPORT INFORMATION
  Report Type: Spontaneous
  Country: US (occurrence: US)
  Receive Date: 20190630
  Receipt Date: 20190630
  Transmission Date: 20191004
  Serious: Yes (Other)
  Sender: FDA-Public Use
  Company Number: None

PATIENT
  Age: 43 Year
  Sex: Female
  Weight: 79.65 kg

DRUGS (1)
  1. EZETEMIBE TAB 10MG [Suspect]
     Active Substance: EZETIMIBE
     Indication: BLOOD CHOLESTEROL
     Dosage: ?          QUANTITY:1 TABLET(S);?
     Route: 048
     Dates: start: 20180601, end: 20190627

REACTIONS (5)
  - Pain in extremity [None]
  - Hypoaesthesia [None]
  - Neuralgia [None]
  - Gait inability [None]
  - Paraesthesia [None]

NARRATIVE: CASE EVENT DATE: 20190627
